FAERS Safety Report 6457837 (Version 3)
Quarter: 2024Q4

REPORT INFORMATION
  Report Type: Spontaneous
  Country: FI (occurrence: FI)
  Receive Date: 20071102
  Receipt Date: 20241219
  Transmission Date: 20250114
  Serious: Yes (Other)
  Sender: SANOFI AVENTIS
  Company Number: FI-AVENTIS-200719871GDDC

PATIENT
  Age: 15 Year
  Sex: Male

DRUGS (2)
  1. CLINDAMYCIN HYDROCHLORIDE [Interacting]
     Active Substance: CLINDAMYCIN HYDROCHLORIDE
     Dosage: 600 MG,INFUSION
     Route: 041
  2. METRONIDAZOLE [Interacting]
     Active Substance: METRONIDAZOLE
     Dosage: 1 G AT ABOUT MIDDAY
     Route: 042

REACTIONS (6)
  - Alcohol intolerance [Unknown]
  - Drug interaction [Unknown]
  - Cold sweat [Unknown]
  - Hypotension [Unknown]
  - Palpitations [Unknown]
  - Pallor [Unknown]
